FAERS Safety Report 23733449 (Version 2)
Quarter: 2024Q2

REPORT INFORMATION
  Report Type: Spontaneous
  Country: FR (occurrence: FR)
  Receive Date: 20240411
  Receipt Date: 20240417
  Transmission Date: 20240715
  Serious: Yes (Hospitalization, Other)
  Sender: FDA-Public Use
  Company Number: FR-009507513-2403FRA008721

PATIENT
  Age: 51 Year
  Sex: Female

DRUGS (11)
  1. CARBOPLATIN [Suspect]
     Active Substance: CARBOPLATIN
     Indication: Triple negative breast cancer
     Dosage: AUC 1.5, AT DAY 1, DAY 8 AND DAY 15 THAN AT DAY 21 (CYCLICAL)
     Dates: start: 20230726, end: 20231018
  2. TAXOL [Suspect]
     Active Substance: PACLITAXEL
     Indication: Triple negative breast cancer
     Dosage: 80 MILLIGRAM/KILOGRAM, AT DAY 1, DAY 8 AND DAY 15 THAN AT DAY 21 (CYCLICAL)
     Dates: start: 20230726, end: 20231018
  3. KEYTRUDA [Suspect]
     Active Substance: PEMBROLIZUMAB
     Indication: Triple negative breast cancer
     Dosage: UNK?FOA-SOLUTION FOR INJECTION
     Dates: start: 20230816, end: 20230816
  4. KEYTRUDA [Suspect]
     Active Substance: PEMBROLIZUMAB
     Dosage: 200 MILLIGRAM, Q3W?FOA-SOLUTION FOR INJECTION
     Route: 042
     Dates: start: 20240313, end: 20240313
  5. KEYTRUDA [Suspect]
     Active Substance: PEMBROLIZUMAB
     Dosage: 200 MILLIGRAM, Q3W?FOA-SOLUTION FOR INJECTION
     Route: 042
     Dates: start: 20230726, end: 20230726
  6. KEYTRUDA [Suspect]
     Active Substance: PEMBROLIZUMAB
     Dosage: UNK?FOA-SOLUTION FOR INJECTION
     Dates: start: 20230913, end: 20230913
  7. KEYTRUDA [Suspect]
     Active Substance: PEMBROLIZUMAB
     Dosage: UNK?FOA-SOLUTION FOR INJECTION
     Dates: start: 20231004, end: 20231004
  8. DEXAMETHASONE [Suspect]
     Active Substance: DEXAMETHASONE
     Indication: Chemotherapy side effect prophylaxis
     Dosage: 8 MILLIGRAM, UNK
     Dates: start: 2023, end: 2023
  9. DEXAMETHASONE [Suspect]
     Active Substance: DEXAMETHASONE
     Dosage: 4 MILLIGRAM, UNK
     Dates: start: 2023, end: 2023
  10. PAROXETINE HYDROCHLORIDE [Concomitant]
     Active Substance: PAROXETINE HYDROCHLORIDE\PAROXETINE HYDROCHLORIDE ANHYDROUS
     Indication: Product used for unknown indication
     Dosage: 20 MG , 1 PER DAY
  11. PAROXETINE HYDROCHLORIDE [Concomitant]
     Active Substance: PAROXETINE HYDROCHLORIDE\PAROXETINE HYDROCHLORIDE ANHYDROUS
     Dosage: 20 MG , 1 PER DAY

REACTIONS (12)
  - Hyperthyroidism [Unknown]
  - Immune-mediated thyroiditis [Recovering/Resolving]
  - Adrenal insufficiency [Unknown]
  - Febrile neutropenia [Recovered/Resolved]
  - Hypophysitis [Recovering/Resolving]
  - Inappropriate schedule of product administration [Unknown]
  - Insomnia [Unknown]
  - Nervousness [Unknown]
  - Agitation [Unknown]
  - Asthenia [Unknown]
  - Dyspnoea [Unknown]
  - Troponin increased [Recovering/Resolving]

NARRATIVE: CASE EVENT DATE: 20230913
